FAERS Safety Report 20453079 (Version 1)
Quarter: 2022Q1

REPORT INFORMATION
  Report Type: Spontaneous
  Country: US (occurrence: US)
  Receive Date: 20220210
  Receipt Date: 20220210
  Transmission Date: 20220424
  Serious: Yes (Hospitalization, Other)
  Sender: FDA-Public Use
  Company Number: US-BRISTOL-MYERS SQUIBB COMPANY-BMS-2022-016831

PATIENT
  Age: 81 Year
  Sex: Male
  Weight: 81.6 kg

DRUGS (6)
  1. ELIQUIS [Suspect]
     Active Substance: APIXABAN
     Indication: Cerebrovascular accident prophylaxis
     Dosage: 5 MILLIGRAM, BID
     Route: 065
     Dates: start: 20201211, end: 20220109
  2. ELIQUIS [Suspect]
     Active Substance: APIXABAN
     Dosage: 5 MILLIGRAM, BID
     Route: 065
     Dates: start: 20220114
  3. PLAVIX [Suspect]
     Active Substance: CLOPIDOGREL BISULFATE
     Indication: Peripheral vascular disorder
     Dosage: 75 MILLIGRAM, QD
     Route: 048
     Dates: start: 20211105, end: 20220109
  4. ASPIRIN [Suspect]
     Active Substance: ASPIRIN
     Indication: Cardiovascular event prophylaxis
     Dosage: 81 MILLIGRAM, QD
     Route: 048
     Dates: start: 20210617, end: 20220109
  5. LECANEMAB [Suspect]
     Active Substance: LECANEMAB
     Indication: Dementia Alzheimer^s type
     Dosage: 10 MG/KG EVERY 2 WEEKS
     Route: 042
     Dates: start: 20191202, end: 20210517
  6. LECANEMAB [Suspect]
     Active Substance: LECANEMAB
     Dosage: 10 MG/KG EVERY 2 WEEKS
     Route: 042
     Dates: start: 20210609, end: 20220104

REACTIONS (8)
  - Gastrointestinal haemorrhage [Not Recovered/Not Resolved]
  - Aortic stenosis [Unknown]
  - Gastritis erosive [Unknown]
  - Hiatus hernia [Unknown]
  - Acquired oesophageal web [Unknown]
  - Duodenitis [Unknown]
  - Oral candidiasis [Unknown]
  - Intentional product use issue [Unknown]

NARRATIVE: CASE EVENT DATE: 20220101
